FAERS Safety Report 11359029 (Version 1)
Quarter: 2015Q3

REPORT INFORMATION
  Report Type: Spontaneous
  Country: US (occurrence: None)
  Receive Date: 20150807
  Receipt Date: 20150807
  Transmission Date: 20151125
  Serious: Yes (Other)
  Sender: FDA-Public Use
  Company Number: None

PATIENT
  Age: 63 Year
  Sex: Female

DRUGS (2)
  1. XALKORI [Suspect]
     Active Substance: CRIZOTINIB
     Indication: LUNG NEOPLASM MALIGNANT
     Dosage: 200MG 1 CAPSULE BID ORAL
     Route: 048
     Dates: start: 20140724
  2. XALKORI [Suspect]
     Active Substance: CRIZOTINIB
     Indication: TRACHEAL CANCER
     Dosage: 200MG 1 CAPSULE BID ORAL
     Route: 048
     Dates: start: 20140724

REACTIONS (7)
  - Stomatitis [None]
  - Fatigue [None]
  - Limb discomfort [None]
  - Diarrhoea [None]
  - Dyspnoea exertional [None]
  - Vomiting [None]
  - Nausea [None]

NARRATIVE: CASE EVENT DATE: 20150206
